FAERS Safety Report 12285624 (Version 1)
Quarter: 2016Q2

REPORT INFORMATION
  Report Type: Spontaneous
  Country: JP (occurrence: JP)
  Receive Date: 20160420
  Receipt Date: 20160420
  Transmission Date: 20160815
  Serious: Yes (Death)
  Sender: FDA-Public Use
  Company Number: JP-009507513-1604JPN011836

PATIENT

DRUGS (1)
  1. REMERON [Suspect]
     Active Substance: MIRTAZAPINE
     Dosage: DAILY DOSE UNKNOWN
     Route: 048

REACTIONS (2)
  - Death [Fatal]
  - Overdose [Unknown]
